FAERS Safety Report 10163136 (Version 1)
Quarter: 2014Q2

REPORT INFORMATION
  Report Type: Spontaneous
  Country: US (occurrence: US)
  Receive Date: 20140509
  Receipt Date: 20140509
  Transmission Date: 20141212
  Serious: Yes (Hospitalization)
  Sender: FDA-Public Use
  Company Number: US-GLAXOSMITHKLINE-A1072308A

PATIENT
  Age: 53 Year
  Sex: Male

DRUGS (4)
  1. ADVAIR [Suspect]
     Indication: ASTHMA
     Dosage: 1PUFF TWICE PER DAY
     Route: 055
     Dates: start: 200104
  2. PRAVASTATIN [Concomitant]
  3. PROPAFENONE [Concomitant]
  4. ATENOLOL [Concomitant]

REACTIONS (3)
  - Small intestinal resection [Recovering/Resolving]
  - Extrasystoles [Recovering/Resolving]
  - Thrombosis [Recovering/Resolving]
